FAERS Safety Report 12404076 (Version 1)
Quarter: 2016Q2

REPORT INFORMATION
  Report Type: Spontaneous
  Country: SE (occurrence: SE)
  Receive Date: 20160525
  Receipt Date: 20160525
  Transmission Date: 20160815
  Serious: Yes (Other)
  Sender: FDA-Public Use
  Company Number: SE-GLAXOSMITHKLINE-SE2016071394

PATIENT
  Age: 9 Year
  Sex: Male

DRUGS (2)
  1. KEPPRA [Suspect]
     Active Substance: LEVETIRACETAM
     Indication: EPILEPSY
     Dosage: 3.5 ML, BID
     Route: 048
     Dates: start: 20151030, end: 20160331
  2. LAMICTAL [Suspect]
     Active Substance: LAMOTRIGINE
     Indication: EPILEPSY
     Dosage: STRENGTH 5 MG, 25 MG AND 50 MG
     Route: 048
     Dates: start: 20150803, end: 201510

REACTIONS (1)
  - Incontinence [Recovered/Resolved]

NARRATIVE: CASE EVENT DATE: 20151001
